FAERS Safety Report 14344501 (Version 1)
Quarter: 2018Q1

REPORT INFORMATION
  Report Type: Spontaneous
  Country: US (occurrence: US)
  Receive Date: 20180102
  Receipt Date: 20180102
  Transmission Date: 20180509
  Serious: Yes (Other)
  Sender: FDA-Public Use
  Company Number: US-NAPPMUNDI-USA-2017-0140610

PATIENT
  Sex: Female

DRUGS (3)
  1. HEROIN [Suspect]
     Active Substance: DIAMORPHINE
     Indication: SUBSTANCE ABUSE
     Dosage: UNK
     Route: 065
  2. COCAINE [Suspect]
     Active Substance: COCAINE
     Indication: SUBSTANCE ABUSE
     Dosage: UNK
     Route: 065
  3. MORPHINE SULFATE (SIMILAR TO NDA 19-516) [Suspect]
     Active Substance: MORPHINE SULFATE
     Indication: PRODUCT USED FOR UNKNOWN INDICATION
     Dosage: UNK
     Route: 048

REACTIONS (6)
  - Unevaluable event [Unknown]
  - Substance abuse [Recovering/Resolving]
  - Somnolence [Unknown]
  - Drug dependence [Recovering/Resolving]
  - Mental disorder [Recovering/Resolving]
  - Euphoric mood [Unknown]
